FAERS Safety Report 5787243-X (Version None)
Quarter: 2008Q2

REPORT INFORMATION
  Report Type: 
  Country: None (occurrence: None)
  Receive Date: 20080623
  Receipt Date: 20080623
  Transmission Date: 20081010
  Serious: Yes (Hospitalization, Other)
  Sender: FDA-Public Use
  Company Number: None

PATIENT
  Sex: Female
  Weight: 41.2773 kg

DRUGS (1)
  1. LOVENOX [Suspect]

REACTIONS (13)
  - ASTHENIA [None]
  - COAGULOPATHY [None]
  - DEPENDENCE [None]
  - DRUG HYPERSENSITIVITY [None]
  - FEMORAL ARTERY OCCLUSION [None]
  - INTERNATIONAL NORMALISED RATIO ABNORMAL [None]
  - LIVEDO RETICULARIS [None]
  - OEDEMA PERIPHERAL [None]
  - PAIN [None]
  - PERIPHERAL ARTERIAL OCCLUSIVE DISEASE [None]
  - PROTHROMBIN TIME ABNORMAL [None]
  - THROMBOCYTOPENIA [None]
  - THROMBOSIS [None]
